FAERS Safety Report 17835387 (Version 3)
Quarter: 2020Q2

REPORT INFORMATION
  Report Type: Other
  Country: US (occurrence: US)
  Receive Date: 20200528
  Receipt Date: 20200618
  Transmission Date: 20200714
  Serious: Yes (Death, Other)
  Sender: FDA-Public Use
  Company Number: US-ACORDA-ACO_165060_2020

PATIENT
  Age: 86 Year
  Sex: Male

DRUGS (2)
  1. INBRIJA [Suspect]
     Active Substance: LEVODOPA
     Indication: ON AND OFF PHENOMENON
     Dosage: 2 DOSAGE FORM, PRN
     Dates: start: 20191223, end: 20200217
  2. INBRIJA [Suspect]
     Active Substance: LEVODOPA
     Indication: PARKINSON^S DISEASE
     Dosage: 2 CAPSULES, PRN
     Dates: start: 201909, end: 2019

REACTIONS (5)
  - Abnormal behaviour [Unknown]
  - Urosepsis [Fatal]
  - Urinary tract infection [Unknown]
  - Cough [Unknown]
  - Device difficult to use [Unknown]

NARRATIVE: CASE EVENT DATE: 2019
